FAERS Safety Report 5856555-3 (Version None)
Quarter: 2008Q3

REPORT INFORMATION
  Report Type: 
  Country: None (occurrence: None)
  Receive Date: 20080825
  Receipt Date: 20080811
  Transmission Date: 20090109
  Serious: Yes (Hospitalization, Other)
  Sender: FDA-Public Use
  Company Number: JP-GENENTECH-266599

PATIENT
  Age: 33 Year

DRUGS (10)
  1. RITUXAN [Suspect]
     Indication: KIDNEY TRANSPLANT REJECTION
     Dosage: 50 MG/MM2, UNK
  2. MYCOPHENOLATE MOFETIL [Suspect]
     Indication: IMMUNOSUPPRESSION
     Dosage: 1000 MG, UNK
  3. GANCICLOVIR [Suspect]
     Indication: CYTOMEGALOVIRUS INFECTION
  4. TACROLIMUS [Suspect]
     Indication: IMMUNOSUPPRESSION
     Dosage: 3 MG, UNK
  5. TACROLIMUS [Suspect]
     Dosage: 4 NG/ML, UNK
  6. CYTOMEGALOVIRUS HYPERIMMUNOGLOBULIN [Concomitant]
     Indication: DRUG USE FOR UNKNOWN INDICATION
  7. METHYLPREDNISOLONE [Concomitant]
     Indication: IMMUNOSUPPRESSION
     Dosage: 4 MG, UNK
  8. MUROMONAB [Concomitant]
     Indication: IMMUNOSUPPRESSION
  9. BASILIXIMAB [Concomitant]
     Indication: IMMUNOSUPPRESSION
  10. VALGANCICLOVIR HCL [Concomitant]
     Indication: PROPHYLAXIS

REACTIONS (1)
  - NEPHROPATHY TOXIC [None]
